FAERS Safety Report 8920972 (Version 4)
Quarter: 2013Q1

REPORT INFORMATION
  Report Type: Spontaneous
  Country: US (occurrence: US)
  Receive Date: 20121123
  Receipt Date: 20130124
  Transmission Date: 20140127
  Serious: No
  Sender: FDA-Public Use
  Company Number: US-009507513-1211USA005393

PATIENT
  Age: 47 None
  Sex: Male
  Weight: 113.38 kg

DRUGS (3)
  1. PEGINTRON [Suspect]
     Indication: HEPATITIS C
     Dosage: UNK
     Dates: start: 20121109
  2. RIBAVIRIN [Suspect]
     Indication: HEPATITIS C
     Dosage: UNK
     Route: 048
     Dates: start: 20121109
  3. VICTRELIS [Suspect]
     Indication: HEPATITIS C
     Dosage: UNK
     Route: 048
     Dates: start: 20121214

REACTIONS (12)
  - Dysgeusia [Unknown]
  - Body temperature increased [Unknown]
  - Feeling cold [Unknown]
  - Heart rate irregular [Unknown]
  - Dyspnoea [Unknown]
  - Fluid intake reduced [Unknown]
  - Injection site warmth [Unknown]
  - Injection site erythema [Unknown]
  - Abdominal pain [Not Recovered/Not Resolved]
  - Malaise [Unknown]
  - Body temperature increased [Unknown]
  - Malaise [Unknown]
